FAERS Safety Report 9857956 (Version 1)
Quarter: 2014Q1

REPORT INFORMATION
  Report Type: Spontaneous
  Country: US (occurrence: US)
  Receive Date: 20140131
  Receipt Date: 20140131
  Transmission Date: 20141002
  Serious: No
  Sender: FDA-Public Use
  Company Number: US-PFIZER INC-2014027380

PATIENT
  Sex: Female

DRUGS (5)
  1. CYTOTEC [Suspect]
     Dosage: UNK
  2. SINEMET [Suspect]
     Dosage: UNK
  3. PERCOCET [Suspect]
     Dosage: UNK
  4. DEPAKOTE [Suspect]
     Dosage: UNK
  5. LACTOSE [Suspect]
     Dosage: UNK

REACTIONS (1)
  - Drug hypersensitivity [Unknown]
